FAERS Safety Report 11457427 (Version 1)
Quarter: 2015Q3

REPORT INFORMATION
  Report Type: Spontaneous
  Country: US (occurrence: None)
  Receive Date: 20150903
  Receipt Date: 20150903
  Transmission Date: 20151125
  Serious: Yes (Hospitalization)
  Sender: FDA-Public Use
  Company Number: None

PATIENT
  Age: 56 Year
  Sex: Female
  Weight: 68.04 kg

DRUGS (1)
  1. CISPLATIN. [Suspect]
     Active Substance: CISPLATIN
     Dates: end: 20150715

REACTIONS (5)
  - Urinary tract infection [None]
  - Hypophosphataemia [None]
  - Pyrexia [None]
  - Anaemia [None]
  - Abdominal pain lower [None]

NARRATIVE: CASE EVENT DATE: 20150729
